FAERS Safety Report 22390110 (Version 1)
Quarter: 2023Q2

REPORT INFORMATION
  Report Type: Spontaneous
  Country: US (occurrence: None)
  Receive Date: 20230530
  Receipt Date: 20230530
  Transmission Date: 20230721
  Serious: Yes (Hospitalization)
  Sender: FDA-Public Use
  Company Number: None

PATIENT
  Age: 57 Year
  Sex: Male

DRUGS (21)
  1. SIROLIMUS [Suspect]
     Active Substance: SIROLIMUS
     Indication: Prophylaxis against transplant rejection
     Dosage: FREQUENCY : DAILY;?
     Route: 048
  2. PROPAFENONE [Concomitant]
  3. AMLODIPINE [Concomitant]
  4. vitamin  b12 [Concomitant]
  5. CALCIUM CITRATE [Concomitant]
  6. DOXYCYCLINE [Concomitant]
  7. ELIQUIS [Concomitant]
  8. DIPHENHYDRAMINE [Concomitant]
  9. URSODIOL [Concomitant]
  10. therems M tablets [Concomitant]
  11. FLUCONAZOLE [Concomitant]
  12. GABAPENTIN [Concomitant]
     Active Substance: GABAPENTIN
  13. humalog U100 kwikpen [Concomitant]
  14. VITAMIN D2 [Concomitant]
  15. HUMULIN N [Concomitant]
     Active Substance: INSULIN HUMAN
  16. ONDANSETRON [Concomitant]
  17. senna [Concomitant]
  18. PREDNISONE [Concomitant]
  19. METOPROLOL TARTRATE [Concomitant]
  20. sarna anti-itch lotion [Concomitant]
  21. acyclovir [Concomitant]

REACTIONS (1)
  - Infection [None]

NARRATIVE: CASE EVENT DATE: 20230516
